FAERS Safety Report 13644370 (Version 1)
Quarter: 2017Q2

REPORT INFORMATION
  Report Type: Spontaneous
  Country: US (occurrence: US)
  Receive Date: 20170612
  Receipt Date: 20170612
  Transmission Date: 20170830
  Serious: No
  Sender: FDA-Public Use
  Company Number: US-ROCHE-1332421

PATIENT
  Sex: Female

DRUGS (7)
  1. FLUOXETINE [Concomitant]
     Active Substance: FLUOXETINE HYDROCHLORIDE
  2. ALAVERT ALLERGY [Concomitant]
     Active Substance: LORATADINE
  3. XELODA [Suspect]
     Active Substance: CAPECITABINE
     Indication: RECTOSIGMOID CANCER
     Dosage: (TOTAL: 1800MG Q12H)
     Route: 048
     Dates: start: 20131113
  4. XELODA [Suspect]
     Active Substance: CAPECITABINE
     Dosage: TOTAL-1800 MG EVERY 12 HOUR
     Route: 048
     Dates: start: 20131113
  5. TEMAZEPAM. [Concomitant]
     Active Substance: TEMAZEPAM
  6. BUPROPION. [Concomitant]
     Active Substance: BUPROPION
  7. OXYGEN. [Concomitant]
     Active Substance: OXYGEN

REACTIONS (1)
  - Dizziness [Unknown]
